FAERS Safety Report 15077488 (Version 4)
Quarter: 2018Q3

REPORT INFORMATION
  Report Type: Spontaneous
  Country: JP (occurrence: JP)
  Receive Date: 20180627
  Receipt Date: 20180822
  Transmission Date: 20181010
  Serious: Yes (Other)
  Sender: FDA-Public Use
  Company Number: JP-ELI_LILLY_AND_COMPANY-JP201806008717

PATIENT
  Age: 61 Year
  Sex: Male

DRUGS (3)
  1. ERBITUX [Suspect]
     Active Substance: CETUXIMAB
     Indication: COLON CANCER
     Dosage: 684 MG, UNKNOWN
     Route: 041
     Dates: start: 20180424, end: 20180424
  2. ERBITUX [Suspect]
     Active Substance: CETUXIMAB
     Dosage: 427 MG, UNK
     Route: 041
     Dates: start: 20180501, end: 20180522
  3. TAS 102 [Suspect]
     Active Substance: TIPIRACIL HYDROCHLORIDE\TRIFLURIDINE
     Indication: COLON CANCER
     Dosage: 120 MG, UNKNOWN
     Route: 048
     Dates: start: 20180424

REACTIONS (9)
  - Skin exfoliation [Unknown]
  - Rash maculo-papular [Unknown]
  - Off label use [Unknown]
  - Neutropenia [Recovered/Resolved]
  - Pyrexia [Recovered/Resolved]
  - Decreased appetite [Recovered/Resolved]
  - Dermatitis acneiform [Recovering/Resolving]
  - Chills [Unknown]
  - Dry skin [Unknown]

NARRATIVE: CASE EVENT DATE: 20180508
